FAERS Safety Report 14956806 (Version 1)
Quarter: 2018Q2

REPORT INFORMATION
  Report Type: Spontaneous
  Country: US (occurrence: US)
  Receive Date: 20180531
  Receipt Date: 20180531
  Transmission Date: 20180711
  Serious: Yes (Death, Hospitalization, Other)
  Sender: FDA-Public Use
  Company Number: US-ASTELLAS-2018US024695

PATIENT
  Age: 70 Year
  Sex: Male

DRUGS (2)
  1. TACROLIMUS. [Suspect]
     Active Substance: TACROLIMUS
     Indication: RENAL TRANSPLANT
     Dosage: UNK UNK, UNKNOWN FREQ.
     Route: 065
  2. TACROLIMUS. [Suspect]
     Active Substance: TACROLIMUS
     Indication: HEART TRANSPLANT

REACTIONS (13)
  - Delirium [Unknown]
  - Demyelination [Unknown]
  - Gait disturbance [Unknown]
  - Agitation [Unknown]
  - Iatrogenic infection [Fatal]
  - Pain [Unknown]
  - Encephalopathy [Unknown]
  - Blood creatine phosphokinase MB increased [Unknown]
  - Extrapyramidal disorder [Unknown]
  - Asthenia [Unknown]
  - Tremor [Unknown]
  - Bacterial sepsis [Unknown]
  - Blood sodium increased [Unknown]
